FAERS Safety Report 21141097 (Version 3)
Quarter: 2022Q3

REPORT INFORMATION
  Report Type: Spontaneous
  Country: JP (occurrence: JP)
  Receive Date: 20220728
  Receipt Date: 20220815
  Transmission Date: 20221027
  Serious: Yes (Other)
  Sender: FDA-Public Use
  Company Number: JP-MSD-M2022-19587

PATIENT
  Age: 79 Year
  Sex: Male

DRUGS (3)
  1. KEYTRUDA [Suspect]
     Active Substance: PEMBROLIZUMAB
     Indication: Gingival cancer
     Dosage: 200 MILLIGRAM, Q3W
     Route: 041
     Dates: start: 202107, end: 2022
  2. CISPLATIN [Concomitant]
     Active Substance: CISPLATIN
     Indication: Gingival cancer
     Dosage: 70 MILLIGRAM, Q3W
     Route: 041
     Dates: start: 202107, end: 2021
  3. FLUOROURACIL [Concomitant]
     Active Substance: FLUOROURACIL
     Indication: Gingival cancer
     Dosage: 700 MILLIGRAM, Q3W
     Route: 041
     Dates: start: 202107, end: 2021

REACTIONS (9)
  - Angioedema [Recovering/Resolving]
  - Abscess jaw [Recovering/Resolving]
  - Erythema multiforme [Recovering/Resolving]
  - Abscess oral [Recovering/Resolving]
  - Oral cavity fistula [Unknown]
  - Osteoradionecrosis [Unknown]
  - Osteoradionecrosis [Unknown]
  - Pruritus [Recovering/Resolving]
  - Rash [Recovering/Resolving]

NARRATIVE: CASE EVENT DATE: 20220101
